FAERS Safety Report 8156491-6 (Version None)
Quarter: 2012Q1

REPORT INFORMATION
  Report Type: 
  Country: None (occurrence: None)
  Receive Date: 20120103
  Receipt Date: 20111025
  Transmission Date: 20120608
  Serious: No
  Sender: FDA-Public Use
  Company Number: AE-2011-002681

PATIENT
  Age: 37 Year
  Sex: Female
  Weight: 116.5744 kg

DRUGS (3)
  1. INCIVEK [Suspect]
     Dosage: 2250 MG (750 MG, 3 IN 1 D), ORAL
     Route: 048
     Dates: start: 20110925
  2. RIBASPHERE [Concomitant]
  3. PEGINTERFERON (PEGINTERFERON ALFA-2A) [Concomitant]

REACTIONS (4)
  - ANAL HAEMORRHAGE [None]
  - RASH GENERALISED [None]
  - OROPHARYNGEAL BLISTERING [None]
  - ANAL PRURITUS [None]
